FAERS Safety Report 10736267 (Version 1)
Quarter: 2015Q1

REPORT INFORMATION
  Report Type: Spontaneous
  Country: US (occurrence: None)
  Receive Date: 20150122
  Receipt Date: 20150122
  Transmission Date: 20150721
  Serious: Yes (Disabling)
  Sender: FDA-Public Use
  Company Number: None

PATIENT
  Age: 41 Year
  Sex: Female
  Weight: 53.07 kg

DRUGS (1)
  1. ADDERALL [Suspect]
     Active Substance: AMPHETAMINE ASPARTATE\AMPHETAMINE SULFATE\DEXTROAMPHETAMINE SACCHARATE\DEXTROAMPHETAMINE SULFATE
     Indication: ATTENTION DEFICIT/HYPERACTIVITY DISORDER
     Dosage: 2/1/2015
     Route: 048

REACTIONS (7)
  - Nausea [None]
  - Headache [None]
  - Dizziness [None]
  - Migraine [None]
  - Product commingling [None]
  - Product substitution issue [None]
  - Balance disorder [None]

NARRATIVE: CASE EVENT DATE: 20150113
